FAERS Safety Report 18758137 (Version 1)
Quarter: 2021Q1

REPORT INFORMATION
  Report Type: Spontaneous
  Country: FR (occurrence: FR)
  Receive Date: 20210119
  Receipt Date: 20210119
  Transmission Date: 20210419
  Serious: Yes (Death)
  Sender: FDA-Public Use
  Company Number: FR-TEVA-2021-FR-1869356

PATIENT
  Age: 48 Year
  Sex: Male

DRUGS (4)
  1. BROMAZEPAM [Suspect]
     Active Substance: BROMAZEPAM
     Dosage: NOT KNOWN
     Route: 048
  2. LORMETAZEPAM [Suspect]
     Active Substance: LORMETAZEPAM
     Dosage: NOT KNOWN
     Route: 048
  3. METHADONE [Suspect]
     Active Substance: METHADONE HYDROCHLORIDE
     Dosage: NOT KNOWN
     Route: 048
  4. CHLORHYDRATE DE TRAMADOL [Suspect]
     Active Substance: TRAMADOL HYDROCHLORIDE
     Dosage: NOT KNOWN
     Route: 048

REACTIONS (1)
  - Cardio-respiratory arrest [Fatal]

NARRATIVE: CASE EVENT DATE: 20201116
